FAERS Safety Report 10236279 (Version 1)
Quarter: 2014Q1

REPORT INFORMATION
  Report Type: Spontaneous
  Country: US (occurrence: None)
  Receive Date: 20140306
  Receipt Date: 20140306
  Transmission Date: 20141002
  Serious: Yes (Other)
  Sender: FDA-Public Use
  Company Number: 163-21880-13103110

PATIENT
  Age: 42 Year
  Sex: Male
  Weight: 104 kg

DRUGS (10)
  1. REVLIMID [Suspect]
     Indication: PLASMA CELL MYELOMA
     Route: 048
     Dates: start: 2010, end: 2010
  2. VELCADE (BORTEZOMIB) [Concomitant]
  3. VALACYCLVOIR (VALACICLOVIR) [Concomitant]
  4. ZOLPIDEM (ZOLPIDEM) [Concomitant]
  5. PREDNISONE (PREDNISONE) [Concomitant]
  6. ASPIRIN (ACETYLSALICYLIC ACID) [Concomitant]
  7. DOCUSATE (DOCUSATE) [Concomitant]
  8. CETIRIZINE (CETIRIZINE) [Concomitant]
  9. OXYCODONE (OXYCODONE) [Concomitant]
  10. COLACE (DOCUSATE SODIUM) [Concomitant]

REACTIONS (2)
  - Hypersensitivity [None]
  - Drug ineffective [None]
